FAERS Safety Report 19854345 (Version 1)
Quarter: 2021Q3

REPORT INFORMATION
  Report Type: Spontaneous
  Country: US (occurrence: US)
  Receive Date: 20210920
  Receipt Date: 20210920
  Transmission Date: 20211014
  Serious: No
  Sender: FDA-Public Use
  Company Number: US-AUROBINDO-AUR-APL-2021-007118

PATIENT
  Age: 9 Year
  Sex: Male

DRUGS (1)
  1. MONTELUKAST CHEWABLE TABLETS 5MG [Suspect]
     Active Substance: MONTELUKAST SODIUM
     Indication: ASTHMA
     Dosage: 1 DOSAGE FORM, DAILY (1 TABLET BY MOUTH PER DAY)
     Route: 048
     Dates: start: 201910

REACTIONS (1)
  - Urticaria [Not Recovered/Not Resolved]
